FAERS Safety Report 5166916-6 (Version None)
Quarter: 2006Q4

REPORT INFORMATION
  Report Type: 
  Country: None (occurrence: None)
  Receive Date: 20061129
  Receipt Date: 20061116
  Transmission Date: 20070319
  Serious: Yes (Hospitalization, Other)
  Sender: FDA-Public Use
  Company Number: 2006142753

PATIENT
  Sex: Female

DRUGS (3)
  1. LIPITOR [Suspect]
     Indication: DYSLIPIDAEMIA
     Dosage: 20 MG (20 MG, 1 IN 1 D),ORAL
     Route: 048
     Dates: start: 20010101
  2. VALSARTAN [Concomitant]
  3. OMEPRAZOLE [Concomitant]

REACTIONS (4)
  - HEADACHE [None]
  - HYPERTENSION [None]
  - ISCHAEMIA [None]
  - NAUSEA [None]
